FAERS Safety Report 8844445 (Version 6)
Quarter: 2012Q4

REPORT INFORMATION
  Report Type: 
  Country: US (occurrence: US)
  Receive Date: 20121017
  Receipt Date: 20121128
  Transmission Date: 20130627
  Serious: Yes (Life-Threatening, Other)
  Sender: FDA-Public Use
  Company Number: PHEH2012US020015

PATIENT
  Sex: Female

DRUGS (16)
  1. EXELON PATCH [Suspect]
     Dosage: 4.6 mg/24 hours
     Route: 062
     Dates: start: 2009
  2. EXELON PATCH [Suspect]
     Dosage: 9.5 mg, once daily
     Route: 062
     Dates: start: 201105
  3. EXELON PATCH [Suspect]
     Route: 062
     Dates: start: 201112
  4. EXELON [Suspect]
     Route: 048
  5. SIMVASTATIN [Concomitant]
     Dosage: 40 mg, UNK
  6. LISINOPRIL [Concomitant]
     Dosage: 20 mg, UNK
  7. ZAFIRLUKAST [Concomitant]
  8. TIZANIDINE [Concomitant]
  9. LEVOTHYROXINE [Concomitant]
     Dosage: 125 ug, UNK
  10. OMBERZOL [Concomitant]
     Dosage: 20 mg, UNK
  11. ALBUTEROL SULFATE [Concomitant]
  12. PRENATAL VITAMINS [Concomitant]
  13. VITAMIIN C [Concomitant]
  14. D3 [Concomitant]
     Dosage: 2000 IU, UNK
  15. ASPIRIN [Concomitant]
     Dosage: 81 mg, UNK
  16. ZINC [Concomitant]

REACTIONS (17)
  - Apparent death [Unknown]
  - Myocardial infarction [Unknown]
  - Osteoarthritis [Unknown]
  - Blood pressure abnormal [Unknown]
  - Asthma [Unknown]
  - Blood pressure systolic increased [Unknown]
  - Diarrhoea [Unknown]
  - Vomiting [Unknown]
  - Abnormal behaviour [Unknown]
  - Fibromyalgia [Unknown]
  - Confusional state [Unknown]
  - Wrong technique in drug usage process [Unknown]
  - Inappropriate schedule of drug administration [Unknown]
  - Feeling abnormal [Unknown]
  - Malaise [Unknown]
  - Dizziness [Unknown]
  - Asthenia [Unknown]
